FAERS Safety Report 13653474 (Version 1)
Quarter: 2017Q2

REPORT INFORMATION
  Report Type: Spontaneous
  Country: US (occurrence: US)
  Receive Date: 20170614
  Receipt Date: 20170614
  Transmission Date: 20170830
  Serious: No
  Sender: FDA-Public Use
  Company Number: US-ROCHE-1376892

PATIENT
  Age: 61 Year
  Sex: Female

DRUGS (1)
  1. XELODA [Suspect]
     Active Substance: CAPECITABINE
     Indication: PRODUCT USED FOR UNKNOWN INDICATION
     Dosage: BID 7 DAYS ON 7 DAYS OFF THEN REPEAT
     Route: 048
     Dates: start: 20131101

REACTIONS (5)
  - Dysuria [Unknown]
  - Nasal congestion [Not Recovered/Not Resolved]
  - Ear infection [Unknown]
  - Renal disorder [Not Recovered/Not Resolved]
  - Somnolence [Not Recovered/Not Resolved]

NARRATIVE: CASE EVENT DATE: 20131101
